FAERS Safety Report 7739316-X (Version None)
Quarter: 2011Q3

REPORT INFORMATION
  Report Type: 
  Country: None (occurrence: None)
  Receive Date: 20110909
  Receipt Date: 20110829
  Transmission Date: 20111222
  Serious: Yes (Death)
  Sender: FDA-Public Use
  Company Number: CN-GENZYME-POMP-1001738

PATIENT
  Age: 14 Month
  Sex: Male

DRUGS (1)
  1. MYOZYME [Suspect]
     Indication: GLYCOGEN STORAGE DISEASE TYPE II
     Dosage: UNK UNK, UNK
     Route: 042

REACTIONS (4)
  - DEATH [None]
  - RESPIRATORY FAILURE [None]
  - MOTOR DYSFUNCTION [None]
  - FEEDING DISORDER [None]
